FAERS Safety Report 16859309 (Version 2)
Quarter: 2019Q4

REPORT INFORMATION
  Report Type: Spontaneous
  Country: DE (occurrence: DE)
  Receive Date: 20190926
  Receipt Date: 20191127
  Transmission Date: 20200122
  Serious: Yes (Other)
  Sender: FDA-Public Use
  Company Number: DE-AMGEN-DEUSP2019158140

PATIENT
  Sex: Female

DRUGS (3)
  1. AIMOVIG [Suspect]
     Active Substance: ERENUMAB-AOOE
     Indication: MIGRAINE WITHOUT AURA
     Dosage: 70 MG, QMO
     Route: 058
     Dates: start: 20190410
  2. AMINEURIN [Concomitant]
     Active Substance: AMITRIPTYLINE HYDROCHLORIDE
     Indication: PROPHYLAXIS
     Dosage: 25 MG, QD
     Route: 048
  3. CONCOR [Concomitant]
     Active Substance: BISOPROLOL FUMARATE
     Indication: HYPERTENSION
     Dosage: 1.25 MILLIGRAM, QD
     Route: 048

REACTIONS (2)
  - Granuloma [Recovering/Resolving]
  - Sarcoidosis [Recovering/Resolving]

NARRATIVE: CASE EVENT DATE: 201906
